FAERS Safety Report 11920393 (Version 7)
Quarter: 2016Q1

REPORT INFORMATION
  Report Type: Report from Study
  Country: CA (occurrence: CA)
  Receive Date: 20160115
  Receipt Date: 20160318
  Transmission Date: 20160526
  Serious: Yes (Hospitalization, Other)
  Sender: FDA-Public Use
  Company Number: CA-BAYER-2015-465331

PATIENT
  Age: 68 Year
  Sex: Male
  Weight: 112.47 kg

DRUGS (17)
  1. NADOLOL. [Concomitant]
     Active Substance: NADOLOL
     Dosage: UNK
     Dates: end: 20160116
  2. LASIX [Concomitant]
     Active Substance: FUROSEMIDE
     Dosage: UNK
  3. LACTULOSE. [Concomitant]
     Active Substance: LACTULOSE
     Dosage: UNK
  4. XIFAXAN [Concomitant]
     Active Substance: RIFAXIMIN
     Dosage: UNK
  5. ADEMPAS [Suspect]
     Active Substance: RIOCIGUAT
     Indication: PULMONARY HYPERTENSION
     Dosage: UNK
     Dates: start: 20151103
  6. ADEMPAS [Suspect]
     Active Substance: RIOCIGUAT
     Indication: PULMONARY HYPERTENSION
     Dosage: 1 MG, TID
     Route: 048
  7. ADEMPAS [Suspect]
     Active Substance: RIOCIGUAT
     Indication: PULMONARY HYPERTENSION
     Dosage: 2 MG, TID
     Route: 048
  8. SPIRONOLACTONE. [Concomitant]
     Active Substance: SPIRONOLACTONE
     Dosage: UNK
  9. WARFARIN [Concomitant]
     Active Substance: WARFARIN
     Dosage: UNK
  10. METOLAZONE. [Concomitant]
     Active Substance: METOLAZONE
     Dosage: UNK
  11. SLOW-K [Concomitant]
     Active Substance: POTASSIUM CHLORIDE
     Dosage: UNK
  12. ADEMPAS [Suspect]
     Active Substance: RIOCIGUAT
     Indication: PULMONARY HYPERTENSION
     Dosage: 2 MG, TID
     Route: 048
  13. ADEMPAS [Suspect]
     Active Substance: RIOCIGUAT
     Indication: PULMONARY HYPERTENSION
     Dosage: 2.5 MG, TID
     Route: 048
  14. METFORMIN [Concomitant]
     Active Substance: METFORMIN HYDROCHLORIDE
     Dosage: UNK
  15. NASONEX [Concomitant]
     Active Substance: MOMETASONE FUROATE
     Dosage: UNK
  16. ADEMPAS [Suspect]
     Active Substance: RIOCIGUAT
     Indication: PULMONARY HYPERTENSION
     Dosage: 1.5 MG, TID
     Route: 048
  17. XIFAXAN [Concomitant]
     Active Substance: RIFAXIMIN

REACTIONS (52)
  - Fall [None]
  - Dizziness [None]
  - Heart rate increased [None]
  - Dyspnoea [None]
  - Heart rate increased [Not Recovered/Not Resolved]
  - Tooth extraction [None]
  - Chest discomfort [None]
  - Asthenia [Not Recovered/Not Resolved]
  - Hypotension [None]
  - Blood glucose decreased [None]
  - Blood count abnormal [Not Recovered/Not Resolved]
  - Platelet count decreased [Not Recovered/Not Resolved]
  - Feeling cold [None]
  - Fatigue [None]
  - Syncope [None]
  - Oedema peripheral [Not Recovered/Not Resolved]
  - Muscular weakness [Recovered/Resolved]
  - Tooth repair [None]
  - Oedema peripheral [None]
  - Skin ulcer [None]
  - Blood glucose abnormal [None]
  - Wound infection [None]
  - Epistaxis [Recovered/Resolved]
  - Pallor [None]
  - Blood pressure systolic increased [None]
  - Fatigue [Not Recovered/Not Resolved]
  - Pruritus [None]
  - Pallor [Not Recovered/Not Resolved]
  - Contusion [None]
  - Nail infection [None]
  - Abdominal distension [Not Recovered/Not Resolved]
  - Ecchymosis [None]
  - Weight decreased [None]
  - Localised oedema [None]
  - Oedema peripheral [Not Recovered/Not Resolved]
  - Ecchymosis [Not Recovered/Not Resolved]
  - Oedema peripheral [None]
  - Accident [None]
  - Loss of consciousness [None]
  - Fatigue [Not Recovered/Not Resolved]
  - Chest discomfort [Not Recovered/Not Resolved]
  - Nasopharyngitis [None]
  - Dyspepsia [Recovered/Resolved]
  - Oedema peripheral [Not Recovered/Not Resolved]
  - Weight increased [None]
  - Weight decreased [None]
  - Dizziness [None]
  - Syncope [None]
  - Cellulitis [Not Recovered/Not Resolved]
  - Heart rate increased [Not Recovered/Not Resolved]
  - Oedema peripheral [Not Recovered/Not Resolved]
  - Ecchymosis [None]

NARRATIVE: CASE EVENT DATE: 201511
